FAERS Safety Report 7527834 (Version 3)
Quarter: 2013Q3

REPORT INFORMATION
  Report Type: Report from Study
  Country: AR (occurrence: AR)
  Receive Date: 20100804
  Receipt Date: 20130813
  Transmission Date: 20140515
  Serious: Yes (Congenital Anomaly)
  Sender: FDA-Public Use
  Company Number: AR-B.I. PHARMACEUTICALS,INC./RIDGEFIELD-2010-BP-08481BP

PATIENT
  Age: 0 Day
  Sex: Male

DRUGS (12)
  1. VIRAMUNE [Suspect]
     Indication: EXPOSURE DURING PREGNANCY
     Route: 064
     Dates: start: 20040810, end: 20050718
  2. VIRAMUNE [Suspect]
     Route: 064
     Dates: start: 20050830, end: 20060201
  3. COMBIVIR [Concomitant]
     Indication: EXPOSURE DURING PREGNANCY
     Route: 064
     Dates: start: 20040810, end: 20050718
  4. COMBIVIR [Concomitant]
     Route: 048
     Dates: start: 20050830, end: 20060221
  5. KALETRA [Concomitant]
     Indication: EXPOSURE DURING PREGNANCY
     Route: 064
     Dates: start: 20060202, end: 20060221
  6. TENOFOVIR DISOPROXIL FUMARATE [Concomitant]
     Indication: EXPOSURE DURING PREGNANCY
     Route: 064
     Dates: start: 20060202, end: 20060221
  7. FERROUS SULFATE [Concomitant]
     Indication: EXPOSURE DURING PREGNANCY
     Route: 064
  8. FERROUS SULFATE [Concomitant]
     Route: 064
     Dates: start: 20050830, end: 20060221
  9. MULITIVITAMINS [Concomitant]
     Indication: EXPOSURE DURING PREGNANCY
     Route: 064
  10. MULITIVITAMINS [Concomitant]
     Route: 064
     Dates: start: 20050830, end: 20060221
  11. TOBACCO [Concomitant]
     Indication: EXPOSURE DURING PREGNANCY
     Route: 064
  12. TOBACCO [Concomitant]
     Route: 064
     Dates: start: 20050830, end: 20060221

REACTIONS (1)
  - Talipes [Unknown]
